FAERS Safety Report 21801635 (Version 4)
Quarter: 2023Q1

REPORT INFORMATION
  Report Type: Report from Study
  Country: CO (occurrence: CO)
  Receive Date: 20221230
  Receipt Date: 20230308
  Transmission Date: 20230418
  Serious: Yes (Hospitalization, Other)
  Sender: FDA-Public Use
  Company Number: CO-TAKEDA-2022TUS035249

PATIENT
  Age: 61 Year
  Sex: Female
  Weight: 72 kg

DRUGS (3)
  1. IXAZOMIB [Suspect]
     Active Substance: IXAZOMIB
     Indication: Plasma cell myeloma
     Dosage: 4 MILLIGRAM
     Route: 048
     Dates: start: 20220516
  2. DEXAMETHASONE [Concomitant]
     Active Substance: DEXAMETHASONE
     Dosage: UNK
     Route: 065
  3. LENALIDOMIDE [Concomitant]
     Active Substance: LENALIDOMIDE
     Dosage: UNK
     Route: 065

REACTIONS (23)
  - Road traffic accident [Not Recovered/Not Resolved]
  - Clavicle fracture [Not Recovered/Not Resolved]
  - Foot fracture [Not Recovered/Not Resolved]
  - Myocardial infarction [Recovered/Resolved]
  - Respiratory distress [Recovered/Resolved]
  - Dermatitis acneiform [Not Recovered/Not Resolved]
  - Hypertension [Unknown]
  - Insomnia [Unknown]
  - Fall [Unknown]
  - Burning sensation [Not Recovered/Not Resolved]
  - Osteoarthritis [Not Recovered/Not Resolved]
  - Injury [Unknown]
  - Pain [Unknown]
  - Malaise [Recovered/Resolved]
  - Influenza [Recovered/Resolved]
  - Cough [Not Recovered/Not Resolved]
  - Pain in extremity [Not Recovered/Not Resolved]
  - Weight decreased [Unknown]
  - Laziness [Unknown]
  - Arthralgia [Not Recovered/Not Resolved]
  - Somnolence [Unknown]
  - Chest pain [Recovered/Resolved]
  - Dizziness [Unknown]

NARRATIVE: CASE EVENT DATE: 20220521
